FAERS Safety Report 9845079 (Version 1)
Quarter: 2014Q1

REPORT INFORMATION
  Report Type: Spontaneous
  Country: US (occurrence: None)
  Receive Date: 20140122
  Receipt Date: 20140122
  Transmission Date: 20141002
  Serious: Yes (Hospitalization)
  Sender: FDA-Public Use
  Company Number: 14AE002

PATIENT
  Age: 24 Year
  Sex: Female
  Weight: 77.11 kg

DRUGS (1)
  1. BISACODYL [Suspect]
     Indication: CONSTIPATION PROPHYLAXIS
     Dosage: 2 BY MOUTH/ ONCE
     Route: 048
     Dates: start: 20140102

REACTIONS (6)
  - Vomiting [None]
  - Abdominal pain upper [None]
  - Faeces discoloured [None]
  - Back pain [None]
  - Hyperhidrosis [None]
  - Chills [None]
